FAERS Safety Report 23796651 (Version 1)
Quarter: 2024Q2

REPORT INFORMATION
  Report Type: Spontaneous
  Country: CA (occurrence: CA)
  Receive Date: 20240430
  Receipt Date: 20240430
  Transmission Date: 20240716
  Serious: Yes (Death, Hospitalization, Other)
  Sender: FDA-Public Use
  Company Number: CA-CHEPLA-2024005335

PATIENT
  Sex: Male

DRUGS (2)
  1. CLONAZEPAM [Suspect]
     Active Substance: CLONAZEPAM
     Indication: Epilepsy
  2. PHENOBARBITAL [Suspect]
     Active Substance: PHENOBARBITAL
     Indication: Epilepsy

REACTIONS (9)
  - Respiratory failure [Fatal]
  - Upper respiratory tract infection [Unknown]
  - Drug ineffective [Unknown]
  - Developmental delay [Unknown]
  - Hypotonia [Unknown]
  - Muscle spasticity [Unknown]
  - Infection [Unknown]
  - Constipation [Unknown]
  - Scoliosis [Unknown]
